FAERS Safety Report 9883229 (Version 1)
Quarter: 2014Q1

REPORT INFORMATION
  Report Type: Spontaneous
  Country: BR (occurrence: BR)
  Receive Date: 20140209
  Receipt Date: 20140209
  Transmission Date: 20141002
  Serious: Yes (Other)
  Sender: FDA-Public Use
  Company Number: PHHY2014BR013761

PATIENT
  Sex: Female
  Weight: 74 kg

DRUGS (3)
  1. RASILEZ HCT [Suspect]
     Indication: BLOOD PRESSURE MANAGEMENT
     Dosage: 0.5 DF (300 MG VALS/ 12.5 MG HYDR), DAILY
     Route: 048
     Dates: end: 20140204
  2. ATENOLOL [Concomitant]
     Indication: HYPERTENSION
     Dosage: 1 DF (25MG), DAILY
     Route: 048
  3. EUTIROX [Concomitant]
     Indication: THYROID FUNCTION TEST ABNORMAL
     Dosage: 1 DF (75 MG), DAILY
     Route: 048

REACTIONS (4)
  - Intraocular pressure increased [Not Recovered/Not Resolved]
  - Astigmatism [Not Recovered/Not Resolved]
  - Visual impairment [Unknown]
  - Wrong technique in drug usage process [Unknown]
